FAERS Safety Report 6861737-8 (Version None)
Quarter: 2010Q3

REPORT INFORMATION
  Report Type: 
  Country: None (occurrence: None)
  Receive Date: 20100721
  Receipt Date: 20100712
  Transmission Date: 20110219
  Serious: No
  Sender: FDA-Public Use
  Company Number: US-BIOGENIDEC-2010BI024067

PATIENT
  Sex: Male

DRUGS (2)
  1. TYSABRI [Suspect]
     Indication: MULTIPLE SCLEROSIS
     Route: 042
     Dates: start: 20090101
  2. PROVIGIL [Concomitant]
     Indication: FATIGUE

REACTIONS (3)
  - CENTRAL NERVOUS SYSTEM LESION [None]
  - DIZZINESS [None]
  - MEMORY IMPAIRMENT [None]
